FAERS Safety Report 10490509 (Version 3)
Quarter: 2014Q4

REPORT INFORMATION
  Report Type: Spontaneous
  Country: FR (occurrence: FR)
  Receive Date: 20141002
  Receipt Date: 20141024
  Transmission Date: 20150528
  Serious: Yes (Hospitalization, Other)
  Sender: FDA-Public Use
  Company Number: FR-PFIZER INC-2014214244

PATIENT
  Age: 42 Year
  Sex: Female

DRUGS (14)
  1. IOMERON [Suspect]
     Active Substance: IOMEPROL
     Indication: SCAN BRAIN
     Dosage: 65 ML OF 300 MG/ML, 1X/DAY
     Route: 042
     Dates: start: 20140718, end: 20140718
  2. TRILEPTAL [Concomitant]
     Active Substance: OXCARBAZEPINE
  3. DEPAKINE CHRONO LP [Concomitant]
     Indication: EPILEPSY
     Dosage: 500 MG, 3X/DAY
  4. URBANYL [Concomitant]
     Active Substance: CLOBAZAM
  5. RINOCLENIL [Concomitant]
     Active Substance: BECLOMETHASONE
  6. INORIAL [Concomitant]
     Active Substance: BILASTINE
  7. PRODILANTIN [Suspect]
     Active Substance: FOSPHENYTOIN SODIUM
     Indication: EPILEPSY
     Dosage: 500 MG, DAILY
     Route: 042
     Dates: start: 20140718, end: 20140718
  8. KEPPRA [Concomitant]
     Active Substance: LEVETIRACETAM
  9. GARDENAL [Concomitant]
     Active Substance: PHENOBARBITAL
  10. RIVOTRIL [Concomitant]
     Active Substance: CLONAZEPAM
     Dosage: UNK
     Dates: start: 20140718, end: 20140718
  11. LEVOTHYROX [Concomitant]
     Active Substance: LEVOTHYROXINE
  12. LARMABAK [Concomitant]
  13. RIVOTRIL [Concomitant]
     Active Substance: CLONAZEPAM
     Dosage: UNK
     Dates: start: 20140718, end: 20140718
  14. MELAXOSE [Concomitant]
     Active Substance: LACTULOSE\PARAFFIN

REACTIONS (2)
  - Stevens-Johnson syndrome [Recovering/Resolving]
  - Injection site erythema [Unknown]

NARRATIVE: CASE EVENT DATE: 20140718
